FAERS Safety Report 5191318-6 (Version None)
Quarter: 2006Q4

REPORT INFORMATION
  Report Type: 
  Country: None (occurrence: None)
  Receive Date: 20061219
  Receipt Date: 20061206
  Transmission Date: 20070319
  Serious: Yes (Hospitalization)
  Sender: FDA-Public Use
  Company Number: 2006-03145

PATIENT
  Age: 58 Year
  Sex: 0

DRUGS (11)
  1. VELCADE [Suspect]
     Indication: MULTIPLE MYELOMA
     Dosage: 1.00 MG/M2
  2. DOXORUBICIN HCL [Suspect]
     Indication: MULTIPLE MYELOMA
  3. DEXAMETHASONE [Suspect]
     Indication: MULTIPLE MYELOMA
  4. ESOMEPRAZOLE (ESOMEPRAZOLE) [Concomitant]
  5. FENTANYL [Concomitant]
  6. X-REP (SENNA LEAF) [Concomitant]
  7. CLODRONIC ACID (CLODRONIC ACID) [Concomitant]
  8. SULFAMETHOXAZOLE + TRIMETHOPRIM [Concomitant]
  9. VALACYCLOVIR [Concomitant]
  10. LORAZEPAM [Concomitant]
  11. DIFLUCAN [Concomitant]

REACTIONS (6)
  - ASTHENIA [None]
  - DISTURBANCE IN ATTENTION [None]
  - FALL [None]
  - MALAISE [None]
  - MUSCULAR WEAKNESS [None]
  - TREMOR [None]
